FAERS Safety Report 20794096 (Version 2)
Quarter: 2022Q2

REPORT INFORMATION
  Report Type: Spontaneous
  Country: ES (occurrence: ES)
  Receive Date: 20220506
  Receipt Date: 20220520
  Transmission Date: 20220721
  Serious: Yes (Hospitalization, Other)
  Sender: FDA-Public Use
  Company Number: ES-AEMPS-1168173

PATIENT
  Age: 74 Year
  Sex: Female

DRUGS (4)
  1. IRINOTECAN [Suspect]
     Active Substance: IRINOTECAN
     Indication: Colon neoplasm
     Dosage: 285 MILLIGRAM, 2 WEEKS
     Route: 042
  2. AFLIBERCEPT [Suspect]
     Active Substance: AFLIBERCEPT
     Indication: Colon neoplasm
     Dosage: 245 MILLIGRAM, 2 WEEKS
     Route: 042
  3. FLUOROURACIL [Suspect]
     Active Substance: FLUOROURACIL
     Indication: Colon neoplasm
     Dosage: 3840 MILLIGRAM
     Route: 042
  4. FLUOROURACIL [Concomitant]
     Active Substance: FLUOROURACIL
     Indication: Colon neoplasm
     Dosage: 640 MILLIGRAM, 2 WEEKS
     Route: 042

REACTIONS (2)
  - Subclavian vein thrombosis [Recovered/Resolved]
  - Brachiocephalic vein thrombosis [Recovered/Resolved]

NARRATIVE: CASE EVENT DATE: 20220331
